FAERS Safety Report 5657279-8 (Version None)
Quarter: 2008Q1

REPORT INFORMATION
  Report Type: 
  Country: None (occurrence: None)
  Receive Date: 20080310
  Receipt Date: 20080228
  Transmission Date: 20080703
  Serious: Yes (Other)
  Sender: FDA-Public Use
  Company Number: GB-PFIZER INC-2008019125

PATIENT
  Sex: Male

DRUGS (2)
  1. VIAGRA [Suspect]
     Route: 048
  2. AVASTIN [Concomitant]
     Indication: MACULAR DEGENERATION

REACTIONS (2)
  - HYPERTENSION [None]
  - VITREOUS HAEMORRHAGE [None]
